FAERS Safety Report 16704094 (Version 1)
Quarter: 2019Q3

REPORT INFORMATION
  Report Type: Spontaneous
  Country: US (occurrence: US)
  Receive Date: 20190814
  Receipt Date: 20190814
  Transmission Date: 20191004
  Serious: No
  Sender: FDA-Public Use
  Company Number: US-TEVA-2019-US-1090128

PATIENT
  Sex: Female

DRUGS (1)
  1. ZOLPIDEM TARTRATE TEVA [Suspect]
     Active Substance: ZOLPIDEM TARTRATE
     Indication: SLEEP DISORDER
     Dosage: 10 MILLIGRAM DAILY;

REACTIONS (3)
  - Abnormal dreams [Unknown]
  - Product quality issue [Unknown]
  - Chest pain [Unknown]
